FAERS Safety Report 8238334-5 (Version None)
Quarter: 2012Q1

REPORT INFORMATION
  Report Type: 
  Country: None (occurrence: None)
  Receive Date: 20120327
  Receipt Date: 20120323
  Transmission Date: 20120608
  Serious: Yes (Death)
  Sender: FDA-Public Use
  Company Number: US-GILEAD-2012-0051470

PATIENT
  Sex: Male

DRUGS (5)
  1. MULTIPLE VITAMINS [Concomitant]
  2. TADALAFIL [Concomitant]
     Indication: PULMONARY HYPERTENSION
  3. ZYRTEC [Concomitant]
  4. FLONASE [Concomitant]
     Indication: RHINITIS ALLERGIC
  5. LETAIRIS [Suspect]
     Indication: PULMONARY HYPERTENSION
     Dosage: 5 MG, UNK
     Route: 048
     Dates: start: 20081105

REACTIONS (13)
  - VOMITING [None]
  - CARDIAC ARREST [None]
  - DEHYDRATION [None]
  - UPPER RESPIRATORY TRACT INFECTION [None]
  - RASH ERYTHEMATOUS [None]
  - CONVULSION [None]
  - ACUTE SINUSITIS [None]
  - NAUSEA [None]
  - VIRAL INFECTION [None]
  - OTITIS MEDIA ACUTE [None]
  - RASH MACULAR [None]
  - ERYTHEMA INFECTIOSUM [None]
  - HYPOVOLAEMIC SHOCK [None]
